FAERS Safety Report 7137603-X (Version None)
Quarter: 2010Q4

REPORT INFORMATION
  Report Type: 
  Country: None (occurrence: None)
  Receive Date: 20101119
  Receipt Date: 20101105
  Transmission Date: 20110411
  Serious: Yes (Hospitalization, Other)
  Sender: FDA-Public Use
  Company Number: 1000017070

PATIENT
  Sex: Female
  Weight: 66 kg

DRUGS (5)
  1. ESCITALOPRAM [Suspect]
     Indication: DEPRESSION
     Dosage: ORAL
     Route: 048
     Dates: end: 20100830
  2. ESCITALOPRAM [Suspect]
     Indication: DEPRESSION
     Dosage: ORAL
     Route: 048
     Dates: start: 20101019
  3. ANALGESIC MEDICATIONS NOS (ANALGESICS (ANALGESICS) [Concomitant]
  4. TEMESTA (LORAZEPAM) (LORAZEPAM) [Concomitant]
  5. EFFEXOR LP (VENLAFAXINE HYDROCHLORIDE) (VENLAFAXINE HYDROCHLORIDE) [Concomitant]

REACTIONS (3)
  - DRUG INEFFECTIVE [None]
  - PSYCHIATRIC EVALUATION ABNORMAL [None]
  - SUICIDE ATTEMPT [None]
